FAERS Safety Report 5839003-9 (Version None)
Quarter: 2008Q3

REPORT INFORMATION
  Report Type: 
  Country: None (occurrence: None)
  Receive Date: 20080808
  Receipt Date: 20080723
  Transmission Date: 20090109
  Serious: No
  Sender: FDA-Public Use
  Company Number: US-BOEHRINGER INGELHEIM GMBH, GERMANY-2008-BP-06938BP

PATIENT
  Sex: Female

DRUGS (3)
  1. ZANTAC 150 [Suspect]
     Indication: DYSPEPSIA
     Route: 048
     Dates: start: 20080501, end: 20080501
  2. PAIN PILL (HYDRACODONE) [Concomitant]
     Indication: ARTHRITIS
  3. GABAPENTIN [Concomitant]

REACTIONS (1)
  - FOREIGN BODY TRAUMA [None]
